FAERS Safety Report 13254549 (Version 1)
Quarter: 2017Q1

REPORT INFORMATION
  Report Type: Spontaneous
  Country: US (occurrence: US)
  Receive Date: 20170221
  Receipt Date: 20170221
  Transmission Date: 20170428
  Serious: No
  Sender: FDA-Public Use
  Company Number: US-ACCORD-044080

PATIENT
  Age: 81 Year
  Sex: Male
  Weight: 87.73 kg

DRUGS (8)
  1. ACETYLSALICYLIC ACID [Concomitant]
     Active Substance: ASPIRIN
  2. ATORVASTATIN [Concomitant]
     Active Substance: ATORVASTATIN
  3. TOPROL XL [Concomitant]
     Active Substance: METOPROLOL SUCCINATE
  4. POTASSIUM [Concomitant]
     Active Substance: POTASSIUM
     Dosage: 10MEQ
  5. PREVACID [Concomitant]
     Active Substance: LANSOPRAZOLE
  6. CARBIDOPA/LEVODOPA ACCORD [Suspect]
     Active Substance: CARBIDOPA\LEVODOPA
     Indication: PARKINSON^S DISEASE
     Dosage: 50/200MG
     Route: 048
     Dates: start: 20160829
  7. TAMSULOSIN/TAMSULOSIN HYDROCHLORIDE [Concomitant]
  8. ZOLOFT [Concomitant]
     Active Substance: SERTRALINE HYDROCHLORIDE

REACTIONS (6)
  - Alanine aminotransferase increased [Unknown]
  - Aspartate aminotransferase increased [Unknown]
  - Nausea [Unknown]
  - Product substitution issue [Unknown]
  - Constipation [Unknown]
  - Product substitution issue [None]
